FAERS Safety Report 24725150 (Version 1)
Quarter: 2024Q4

REPORT INFORMATION
  Report Type: Spontaneous
  Country: ES (occurrence: ES)
  Receive Date: 20241212
  Receipt Date: 20241212
  Transmission Date: 20250114
  Serious: Yes (Other)
  Sender: VKT PHARMA PRIVATE LIMITED
  Company Number: ES-VKT-000618

PATIENT
  Age: 32 Year
  Sex: Female

DRUGS (3)
  1. EPINEPHRINE [Suspect]
     Active Substance: EPINEPHRINE
     Indication: Kounis syndrome
     Route: 065
  2. RANITIDINE [Suspect]
     Active Substance: RANITIDINE
     Indication: Abdominal pain
     Route: 042
  3. RANITIDINE [Suspect]
     Active Substance: RANITIDINE
     Indication: Dyspepsia
     Route: 042

REACTIONS (3)
  - Kounis syndrome [Recovered/Resolved]
  - Stress cardiomyopathy [Recovered/Resolved]
  - Anaphylactic reaction [Recovered/Resolved]
